FAERS Safety Report 7652645-3 (Version None)
Quarter: 2011Q3

REPORT INFORMATION
  Report Type: 
  Country: None (occurrence: None)
  Receive Date: 20110728
  Receipt Date: 20110712
  Transmission Date: 20111222
  Serious: Yes (Other)
  Sender: FDA-Public Use
  Company Number: 2011MA008729

PATIENT
  Age: 50 Year
  Sex: Female
  Weight: 79 kg

DRUGS (8)
  1. DEXAMETHASONE [Suspect]
     Indication: GLIOBLASTOMA MULTIFORME
     Dates: start: 20081101
  2. ESCITALOPRAM [Concomitant]
  3. PHENYTOIN [Suspect]
     Indication: CONVULSION
     Dosage: 100 MG;TID
     Dates: start: 20081101, end: 20081201
  4. MULTI-VITAMIN [Concomitant]
  5. LEVETIRACETAM [Suspect]
     Indication: CONVULSION
     Dosage: 500 MG;BID
     Dates: start: 20081101, end: 20090411
  6. TEMOZOLOMIDE [Suspect]
     Indication: GLIOBLASTOMA MULTIFORME
     Dates: start: 20081101, end: 20081201
  7. RANITIDINE [Suspect]
     Indication: PRODUCT USED FOR UNKNOWN INDICATION
     Dates: start: 20081101
  8. ADVAIR DISKUS 100/50 [Concomitant]

REACTIONS (5)
  - THROMBOCYTOPENIA [None]
  - BONE MARROW FAILURE [None]
  - CLONIC CONVULSION [None]
  - GLIOBLASTOMA MULTIFORME [None]
  - RECURRENT CANCER [None]
